FAERS Safety Report 6694520-7 (Version None)
Quarter: 2010Q2

REPORT INFORMATION
  Report Type: 
  Country: None (occurrence: None)
  Receive Date: 20100423
  Receipt Date: 20100413
  Transmission Date: 20101027
  Serious: Yes (Other)
  Sender: FDA-Public Use
  Company Number: US-JNJFOC-20100403987

PATIENT
  Sex: Female
  Weight: 53.07 kg

DRUGS (5)
  1. REMICADE [Suspect]
     Indication: CROHN'S DISEASE
     Route: 042
  2. PREDNISONE [Concomitant]
     Indication: CROHN'S DISEASE
  3. PURINETHOL [Concomitant]
     Indication: CROHN'S DISEASE
  4. AZULFIDINE [Concomitant]
  5. LORCET-HD [Concomitant]
     Indication: PAIN

REACTIONS (6)
  - CARPAL TUNNEL DECOMPRESSION [None]
  - INTESTINAL RESECTION [None]
  - MYALGIA [None]
  - NERVE INJURY [None]
  - PYREXIA [None]
  - VITAMIN B12 DEFICIENCY [None]
